FAERS Safety Report 7770339-0 (Version None)
Quarter: 2011Q3

REPORT INFORMATION
  Report Type: 
  Country: None (occurrence: None)
  Receive Date: 20110922
  Receipt Date: 20100816
  Transmission Date: 20111222
  Serious: No
  Sender: FDA-Public Use
  Company Number: US-ASTRAZENECA-2010SE38445

PATIENT
  Age: 38 Year
  Sex: Female

DRUGS (4)
  1. SEROQUEL [Suspect]
     Indication: MENTAL DISORDER
     Route: 048
     Dates: start: 20060101
  2. SEROQUEL [Suspect]
     Route: 048
  3. AMBIEN [Suspect]
     Route: 065
  4. SEROQUEL [Suspect]
     Route: 048

REACTIONS (4)
  - INSOMNIA [None]
  - DRUG DOSE OMISSION [None]
  - MALAISE [None]
  - WRONG DRUG ADMINISTERED [None]
